FAERS Safety Report 7005645-0 (Version None)
Quarter: 2010Q3

REPORT INFORMATION
  Report Type: 
  Country: None (occurrence: None)
  Receive Date: 20100921
  Receipt Date: 20100916
  Transmission Date: 20110219
  Serious: Yes (Hospitalization)
  Sender: FDA-Public Use
  Company Number: A0882188A

PATIENT
  Sex: Male

DRUGS (1)
  1. AVANDARYL [Suspect]
     Route: 048
     Dates: start: 20070301, end: 20090413

REACTIONS (5)
  - CARDIAC FAILURE CONGESTIVE [None]
  - HEART INJURY [None]
  - LUNG DISORDER [None]
  - RENAL FAILURE [None]
  - RENAL INJURY [None]
